FAERS Safety Report 11108262 (Version 1)
Quarter: 2015Q2

REPORT INFORMATION
  Report Type: Spontaneous
  Country: BR (occurrence: BR)
  Receive Date: 20150512
  Receipt Date: 20150512
  Transmission Date: 20150821
  Serious: Yes (Other)
  Sender: FDA-Public Use
  Company Number: PHHY2015BR056123

PATIENT
  Sex: Female
  Weight: 48 kg

DRUGS (2)
  1. EXODUS//NICOTINE [Concomitant]
     Active Substance: NICOTINE
     Indication: APATHY
     Dosage: 1 DF, QD
     Route: 048
  2. EXELON [Suspect]
     Active Substance: RIVASTIGMINE TARTRATE
     Indication: DEMENTIA ALZHEIMER^S TYPE
     Route: 048

REACTIONS (9)
  - Muscular weakness [Recovered/Resolved]
  - Nervousness [Recovered/Resolved]
  - Malaise [Recovered/Resolved]
  - Stress [Recovered/Resolved]
  - Gait disturbance [Recovered/Resolved]
  - Anxiety [Recovered/Resolved]
  - Weight decreased [Unknown]
  - Tremor [Recovered/Resolved]
  - Vomiting [Recovered/Resolved]
